FAERS Safety Report 21434178 (Version 1)
Quarter: 2022Q4

REPORT INFORMATION
  Report Type: Spontaneous
  Country: US (occurrence: US)
  Receive Date: 20221010
  Receipt Date: 20221010
  Transmission Date: 20230113
  Serious: No
  Sender: FDA-Public Use
  Company Number: US-SA-SAC20221003001613

PATIENT
  Age: 13 Year
  Sex: Male
  Weight: 45 kg

DRUGS (9)
  1. DUPIXENT [Suspect]
     Active Substance: DUPILUMAB
     Indication: Dermatitis atopic
     Dosage: 200 MG, QOW
     Route: 058
  2. HYDROXYZINE HYDROCHLORIDE [Concomitant]
     Active Substance: HYDROXYZINE HYDROCHLORIDE
  3. POLYMYXIN B SULFATE;TRIMETHOPRIM [Concomitant]
  4. FLUOCINONIDE [Concomitant]
     Active Substance: FLUOCINONIDE
  5. DESONIDE [Concomitant]
     Active Substance: DESONIDE
  6. TACROLIMUS [Concomitant]
     Active Substance: TACROLIMUS
  7. ELIDEL [Concomitant]
     Active Substance: PIMECROLIMUS
  8. XYZAL [Concomitant]
     Active Substance: LEVOCETIRIZINE DIHYDROCHLORIDE
  9. DERMA-SMOOTHE/FS [Concomitant]
     Active Substance: FLUOCINOLONE ACETONIDE
     Dosage: UNK

REACTIONS (2)
  - Nasopharyngitis [Not Recovered/Not Resolved]
  - Conjunctivitis [Not Recovered/Not Resolved]

NARRATIVE: CASE EVENT DATE: 20220101
